FAERS Safety Report 25598669 (Version 1)
Quarter: 2025Q3

REPORT INFORMATION
  Report Type: Spontaneous
  Country: GB (occurrence: GB)
  Receive Date: 20250724
  Receipt Date: 20250724
  Transmission Date: 20251021
  Serious: Yes (Other)
  Sender: TEVA
  Company Number: None

PATIENT
  Sex: Male

DRUGS (1)
  1. FLUTICASONE [Suspect]
     Active Substance: FLUTICASONE
     Indication: Polyp
     Route: 065
     Dates: start: 20250207, end: 20250620

REACTIONS (9)
  - Chest discomfort [Not Recovered/Not Resolved]
  - Dyspnoea [Recovered/Resolved with Sequelae]
  - Insomnia [Recovering/Resolving]
  - Dizziness [Recovering/Resolving]
  - Vision blurred [Recovered/Resolved]
  - Rash [Recovered/Resolved]
  - Lethargy [Not Recovered/Not Resolved]
  - Brain fog [Recovering/Resolving]
  - Sensitive skin [Recovering/Resolving]
